FAERS Safety Report 4309972-7 (Version None)
Quarter: 2004Q1

REPORT INFORMATION
  Report Type: 
  Country: None (occurrence: None)
  Receive Date: 20040227
  Receipt Date: 20031114
  Transmission Date: 20041129
  Serious: No
  Sender: FDA-Public Use
  Company Number: FABR-10375

PATIENT
  Age: 34 Year
  Sex: Male
  Weight: 68.9467 kg

DRUGS (6)
  1. FABRAZYME [Suspect]
     Indication: FABRY'S DISEASE
     Dosage: 1 MG/KG Q2WKS
     Dates: start: 20030819
  2. PREDNISONE [Concomitant]
  3. ACETAMINOPHEN [Concomitant]
  4. IBUPROFEN [Concomitant]
  5. ZANATAC [Concomitant]
  6. DILANTIN [Concomitant]

REACTIONS (1)
  - CHILLS [None]
